FAERS Safety Report 21717797 (Version 1)
Quarter: 2022Q4

REPORT INFORMATION
  Report Type: Spontaneous
  Country: US (occurrence: US)
  Receive Date: 20221212
  Receipt Date: 20221212
  Transmission Date: 20230113
  Serious: No
  Sender: FDA-Public Use
  Company Number: US-GBT-015561

PATIENT
  Age: 35 Year
  Sex: Male

DRUGS (2)
  1. OXBRYTA [Suspect]
     Active Substance: VOXELOTOR
     Indication: Sickle cell disease
  2. ENDARI [Concomitant]
     Active Substance: GLUTAMINE

REACTIONS (3)
  - Intentional product use issue [Unknown]
  - Urticaria [Unknown]
  - Therapy cessation [Unknown]
